FAERS Safety Report 6371636-6 (Version None)
Quarter: 2009Q3

REPORT INFORMATION
  Report Type: 
  Country: None (occurrence: None)
  Receive Date: 20090923
  Receipt Date: 20080730
  Transmission Date: 20100115
  Serious: Yes (Hospitalization)
  Sender: FDA-Public Use
  Company Number: US-ASTRAZENECA-2008UW14687

PATIENT
  Age: 82 Year
  Sex: Female
  Weight: 74.8 kg

DRUGS (8)
  1. SEROQUEL [Suspect]
     Indication: DEMENTIA ALZHEIMER'S TYPE
     Route: 048
     Dates: start: 20080711, end: 20080701
  2. SEROQUEL [Suspect]
     Indication: AGITATION
     Route: 048
     Dates: start: 20080711, end: 20080701
  3. REMERON [Concomitant]
  4. EFFEXOR [Concomitant]
  5. EXELON [Concomitant]
  6. LEVOTHROID [Concomitant]
  7. LISINOPRIL [Concomitant]
  8. LOVASTATIN [Concomitant]

REACTIONS (4)
  - DYSPNOEA [None]
  - HYPERHIDROSIS [None]
  - MUSCLE TWITCHING [None]
  - TREMOR [None]
